FAERS Safety Report 10175759 (Version 2)
Quarter: 2014Q2

REPORT INFORMATION
  Report Type: Spontaneous
  Country: JP (occurrence: JP)
  Receive Date: 20140516
  Receipt Date: 20140519
  Transmission Date: 20141212
  Serious: Yes (Other)
  Sender: FDA-Public Use
  Company Number: JP-ROCHE-1399516

PATIENT
  Age: 69 Year
  Sex: Male

DRUGS (3)
  1. AVASTIN [Suspect]
     Indication: LUNG ADENOCARCINOMA METASTATIC
     Dosage: DOSAGE IS UNCERTAIN.
     Route: 041
  2. CARBOPLATIN [Concomitant]
     Indication: LUNG ADENOCARCINOMA METASTATIC
     Dosage: DOSAGE IS UNCERTAIN.
     Route: 041
  3. PACLITAXEL [Concomitant]
     Indication: LUNG ADENOCARCINOMA METASTATIC
     Dosage: DOSAGE IS UNCERTAIN.
     Route: 041

REACTIONS (1)
  - Pulmonary tuberculosis [Recovering/Resolving]
